FAERS Safety Report 6939934-2 (Version None)
Quarter: 2010Q3

REPORT INFORMATION
  Report Type: 
  Country: None (occurrence: None)
  Receive Date: 20100825
  Receipt Date: 20100818
  Transmission Date: 20110219
  Serious: Yes (Other)
  Sender: FDA-Public Use
  Company Number: JP-PFIZER INC-2010103669

PATIENT
  Age: 34 Year
  Sex: Female

DRUGS (4)
  1. HYDROCORTISONE SODIUM SUCCINATE [Suspect]
     Indication: ADRENAL INSUFFICIENCY
     Dosage: 200 MG/DAY
     Route: 042
     Dates: start: 20090724
  2. CORTRIL [Suspect]
     Indication: ADRENAL INSUFFICIENCY
     Dosage: 15 MG, DAY
     Route: 048
     Dates: start: 20090725
  3. GLUCOSE [Concomitant]
     Dosage: UNK
     Route: 042
  4. NORMAL SALINE [Concomitant]
     Dosage: UNK
     Route: 042

REACTIONS (1)
  - PSYCHOTIC DISORDER [None]
